FAERS Safety Report 6233126-0 (Version None)
Quarter: 2009Q2

REPORT INFORMATION
  Report Type: 
  Country: None (occurrence: None)
  Receive Date: 20090616
  Receipt Date: 20090616
  Transmission Date: 20091009
  Serious: Yes (Hospitalization)
  Sender: FDA-Public Use
  Company Number: None

PATIENT
  Age: 56 Year
  Sex: Male
  Weight: 79.4 kg

DRUGS (3)
  1. SORAFENIB [Suspect]
     Indication: GLIOBLASTOMA MULTIFORME
     Dosage: 200MG BID
     Dates: start: 20080514, end: 20080624
  2. TEMODAR [Suspect]
     Dosage: 75MG/M2
     Dates: start: 20080514, end: 20080624
  3. DECADRON [Concomitant]

REACTIONS (5)
  - ABNORMAL BEHAVIOUR [None]
  - CONVULSION [None]
  - POSTICTAL STATE [None]
  - PYREXIA [None]
  - RASH [None]
